FAERS Safety Report 10601344 (Version 2)
Quarter: 2014Q4

REPORT INFORMATION
  Report Type: Spontaneous
  Country: US (occurrence: None)
  Receive Date: 20141120
  Receipt Date: 20141216
  Transmission Date: 20150529
  Serious: Yes (Hospitalization, Other)
  Sender: FDA-Public Use
  Company Number: US2014GSK022432

PATIENT
  Age: 60 Year
  Sex: Female

DRUGS (3)
  1. EPIVIR HBV [Suspect]
     Active Substance: LAMIVUDINE
     Indication: PROPHYLAXIS
     Dates: start: 200110
  2. EPIVIR HBV [Suspect]
     Active Substance: LAMIVUDINE
     Indication: HEPATITIS B
     Dates: start: 200110
  3. EPIVIR HBV [Suspect]
     Active Substance: LAMIVUDINE
     Indication: RENAL TRANSPLANT
     Dates: start: 200110

REACTIONS (3)
  - Viral infection [None]
  - Dehydration [None]
  - Malaise [None]

NARRATIVE: CASE EVENT DATE: 201405
